FAERS Safety Report 5035167-8 (Version None)
Quarter: 2006Q2

REPORT INFORMATION
  Report Type: 
  Country: None (occurrence: None)
  Receive Date: 20060519
  Receipt Date: 20060223
  Transmission Date: 20061013
  Serious: No
  Sender: FDA-Public Use
  Company Number: TPA2006A00279

PATIENT
  Age: 76 Year
  Sex: Male
  Weight: 68.0396 kg

DRUGS (12)
  1. ROZEREM [Suspect]
     Indication: INSOMNIA
     Dosage: 8 MG, 1 IN 1 D, PER ORAL
     Route: 048
     Dates: start: 20060201, end: 20060201
  2. FUROSEMIDE [Concomitant]
  3. HCTZ (HYDROCHLOROTHIAZIDE) (25 MILLIGRAM) [Concomitant]
  4. KLON-CON (POTASSIUM CHLORIDE) (20 MILLIEQUIVALENTS) [Concomitant]
  5. METOPROLOL (METOPROLOL) (50 MILLIGRAM) [Concomitant]
  6. ASPIRIN [Concomitant]
  7. ENALAPRIL (ENALAPRIL) (20 MILLIGRAM) [Concomitant]
  8. TERAZOSIN (TERAZOSIN) (10 MILLIGRAM) [Concomitant]
  9. METFORMIN (METFORMIN) (500 MILLIGRAM) [Concomitant]
  10. GLYBURIDE [Concomitant]
  11. VERAPAMIL (VERAPAMIL) (180 MILLIGRAM) [Concomitant]
  12. AVAPRO (IRBESARTAN) (20 MILLIGRAM) [Concomitant]

REACTIONS (1)
  - INITIAL INSOMNIA [None]
